FAERS Safety Report 6437067-5 (Version None)
Quarter: 2009Q4

REPORT INFORMATION
  Report Type: 
  Country: None (occurrence: None)
  Receive Date: 20091112
  Receipt Date: 20091105
  Transmission Date: 20100525
  Serious: Yes (Other)
  Sender: FDA-Public Use
  Company Number: US-JNJFOC-20091101655

PATIENT
  Sex: Female
  Weight: 53.07 kg

DRUGS (15)
  1. FENTANYL TRANSDERMAL SYSTEM [Suspect]
     Indication: PAIN
     Route: 062
  2. DURAGESIC-100 [Suspect]
  3. DURAGESIC-100 [Suspect]
     Indication: PAIN
  4. DURAGESIC-100 [Suspect]
     Route: 062
  5. PROCARDIA [Concomitant]
     Indication: ANTICOAGULANT THERAPY
  6. PROTONIX [Concomitant]
     Indication: GASTROINTESTINAL DISORDER THERAPY
     Route: 048
  7. VASOTEC [Concomitant]
     Indication: BLOOD PRESSURE
     Route: 048
  8. ZONEGRAN [Concomitant]
     Indication: CONVULSION
     Route: 048
  9. ZETIA [Concomitant]
     Indication: BLOOD CHOLESTEROL
     Route: 048
  10. AMBIEN CR [Concomitant]
     Indication: SLEEP DISORDER
     Route: 048
  11. ELAVIL [Concomitant]
     Indication: PAIN
     Route: 048
  12. FIORICET [Concomitant]
     Indication: MIGRAINE
  13. AMRIX [Concomitant]
     Indication: FIBROMYALGIA
     Route: 048
  14. MOBIC [Concomitant]
     Indication: FIBROMYALGIA
     Route: 048
  15. TAPENTADOL HYDROCHLORIDE [Concomitant]
     Indication: BREAKTHROUGH PAIN
     Route: 048

REACTIONS (6)
  - APPLICATION SITE ERYTHEMA [None]
  - APPLICATION SITE RASH [None]
  - FUNGAL INFECTION [None]
  - INAPPROPRIATE SCHEDULE OF DRUG ADMINISTRATION [None]
  - PRODUCT ADHESION ISSUE [None]
  - WRONG TECHNIQUE IN DRUG USAGE PROCESS [None]
